FAERS Safety Report 5330541-4 (Version None)
Quarter: 2007Q2

REPORT INFORMATION
  Report Type: 
  Country: None (occurrence: None)
  Receive Date: 20070516
  Receipt Date: 20070501
  Transmission Date: 20071010
  Serious: Yes (Hospitalization)
  Sender: FDA-Public Use
  Company Number: 100#08#2007-01532

PATIENT
  Age: 58 Year
  Sex: Female

DRUGS (7)
  1. FLUCONAZOLE [Suspect]
     Indication: TINEA PEDIS
     Dosage: 150 MG /WEEK
  2. AMLODIPINE (AMLODIPINE) (AMLODIPINE) [Concomitant]
  3. VALSARTAN (VALSARTAN) (VALSARTAN) [Concomitant]
  4. TORASEMIDE (TORASEMIDE) (TORASEMIDE) [Concomitant]
  5. HYDROCHLOROTHIAZIDE [Concomitant]
  6. METOCLOPRAMIDE (METOCLOPRAMIDE) (METOCLOPRAMIDE) [Concomitant]
  7. LEVOPRIDE (LEVOSULPIRIDE) (LEVOSULPIRIDE) [Concomitant]

REACTIONS (2)
  - GLOMERULONEPHRITIS MEMBRANOUS [None]
  - NEPHROTIC SYNDROME [None]
